FAERS Safety Report 5504560-9 (Version None)
Quarter: 2007Q4

REPORT INFORMATION
  Report Type: 
  Country: None (occurrence: None)
  Receive Date: 20071031
  Receipt Date: 20071022
  Transmission Date: 20080405
  Serious: Yes (Hospitalization)
  Sender: FDA-Public Use
  Company Number: 2007SP010110

PATIENT
  Age: 55 Year
  Sex: Male

DRUGS (11)
  1. PEG-INTRON [Suspect]
     Indication: HEPATITIS C
     Dosage: 100 MCG QW SC
     Route: 058
     Dates: start: 20060313, end: 20061227
  2. REBETOL [Suspect]
     Indication: HEPATITIS C
     Dosage: 600 MG QD PO ; 500 MG QD PO ; 400 MG QD PO ; 600 MG QD PO
     Route: 048
     Dates: start: 20060313, end: 20060426
  3. REBETOL [Suspect]
     Indication: HEPATITIS C
     Dosage: 600 MG QD PO ; 500 MG QD PO ; 400 MG QD PO ; 600 MG QD PO
     Route: 048
     Dates: start: 20060427, end: 20060510
  4. REBETOL [Suspect]
     Indication: HEPATITIS C
     Dosage: 600 MG QD PO ; 500 MG QD PO ; 400 MG QD PO ; 600 MG QD PO
     Route: 048
     Dates: start: 20060511, end: 20060627
  5. REBETOL [Suspect]
     Indication: HEPATITIS C
     Dosage: 600 MG QD PO ; 500 MG QD PO ; 400 MG QD PO ; 600 MG QD PO
     Route: 048
     Dates: start: 20060828, end: 20070103
  6. GLYBURIDE [Concomitant]
  7. GLUCOBAY [Concomitant]
  8. MELBIN [Concomitant]
  9. VOLTAREN [Concomitant]
  10. JEOASE [Concomitant]
  11. CACELMIN [Concomitant]

REACTIONS (3)
  - CELLULITIS [None]
  - HAEMOGLOBIN DECREASED [None]
  - VITREOUS HAEMORRHAGE [None]
